FAERS Safety Report 8196198-2 (Version None)
Quarter: 2012Q1

REPORT INFORMATION
  Report Type: 
  Country: None (occurrence: None)
  Receive Date: 20120309
  Receipt Date: 20120228
  Transmission Date: 20120608
  Serious: Yes (Hospitalization, Other)
  Sender: FDA-Public Use
  Company Number: BR-BAYER-2012-020489

PATIENT
  Age: 41 Year
  Sex: Female
  Weight: 50 kg

DRUGS (2)
  1. MIRENA [Suspect]
     Indication: ENDOMETRIOSIS
     Dosage: UNK
     Dates: start: 20110302
  2. MIRENA [Suspect]
     Indication: MENSTRUAL CYCLE MANAGEMENT

REACTIONS (12)
  - DIZZINESS [None]
  - GASTRIC DISORDER [None]
  - SYNCOPE [None]
  - UTERINE INFECTION [None]
  - ASTHENIA [None]
  - VAGINAL HAEMORRHAGE [None]
  - UTERINE INFLAMMATION [None]
  - MENORRHAGIA [None]
  - ABDOMINAL PAIN [None]
  - ABDOMINAL DISTENSION [None]
  - MOBILITY DECREASED [None]
  - VOMITING [None]
